FAERS Safety Report 4660052-0 (Version None)
Quarter: 2005Q2

REPORT INFORMATION
  Report Type: 
  Country: None (occurrence: None)
  Receive Date: 20050512
  Receipt Date: 20050509
  Transmission Date: 20051028
  Serious: Yes (Hospitalization)
  Sender: FDA-Public Use
  Company Number: US-JNJFOC-20050501919

PATIENT
  Age: 53 Year
  Sex: Female

DRUGS (3)
  1. CONCERTA [Suspect]
     Dosage: THREE 54 MG TABLETS IN THE MORNING, AND THREE 54 MG TABLETS IN THE AFTERNOON
     Route: 049
  2. ZOLOFT [Concomitant]
     Indication: DRUG USE FOR UNKNOWN INDICATION
  3. FUROSEMIDE [Concomitant]
     Indication: DRUG USE FOR UNKNOWN INDICATION

REACTIONS (2)
  - OEDEMA PERIPHERAL [None]
  - PRESCRIBED OVERDOSE [None]
